FAERS Safety Report 9107691 (Version 2)
Quarter: 2013Q2

REPORT INFORMATION
  Report Type: Spontaneous
  Country: US (occurrence: US)
  Receive Date: 20130221
  Receipt Date: 20130507
  Transmission Date: 20140414
  Serious: Yes (Hospitalization)
  Sender: FDA-Public Use
  Company Number: 2013SP000501

PATIENT
  Age: 57 Year
  Sex: Female

DRUGS (6)
  1. XOPENEX INHALATION SOLUTION [Suspect]
     Indication: CHRONIC OBSTRUCTIVE PULMONARY DISEASE
     Route: 055
  2. MUCINEX DM [Concomitant]
     Indication: CHRONIC OBSTRUCTIVE PULMONARY DISEASE
     Route: 048
  3. ALBUTEROL HFA [Concomitant]
     Indication: CHRONIC OBSTRUCTIVE PULMONARY DISEASE
     Route: 055
  4. ALBUTEROL HFA [Concomitant]
     Indication: DYSPNOEA
     Route: 055
  5. ATROVENT [Concomitant]
     Indication: CHRONIC OBSTRUCTIVE PULMONARY DISEASE
  6. ATROVENT [Concomitant]
     Indication: DYSPNOEA

REACTIONS (2)
  - Pneumonia [Recovered/Resolved]
  - Expired drug administered [None]
